FAERS Safety Report 20998711 (Version 1)
Quarter: 2022Q2

REPORT INFORMATION
  Report Type: Report from Study
  Country: CA (occurrence: CA)
  Receive Date: 20220623
  Receipt Date: 20220623
  Transmission Date: 20220721
  Serious: Yes (Other)
  Sender: FDA-Public Use
  Company Number: CA-IMMUNOCORE, LTD-2022-IMC-000934

PATIENT

DRUGS (1)
  1. TEBENTAFUSP [Suspect]
     Active Substance: TEBENTAFUSP
     Indication: Product used for unknown indication

REACTIONS (3)
  - Renal failure [Unknown]
  - Chills [Unknown]
  - Product dose omission issue [Unknown]
